FAERS Safety Report 4525040-3 (Version None)
Quarter: 2004Q4

REPORT INFORMATION
  Report Type: 
  Country: None (occurrence: None)
  Receive Date: 20041117
  Receipt Date: 20031024
  Transmission Date: 20050328
  Serious: Yes (Hospitalization, Other)
  Sender: FDA-Public Use
  Company Number: C2003-2841.01

PATIENT
  Age: 61 Year
  Sex: Female

DRUGS (6)
  1. CLOZAPINE [Suspect]
     Indication: SCHIZOAFFECTIVE DISORDER
     Dosage: 200MG Q AM AND 300MG Q HS, ORAL
     Route: 048
     Dates: start: 20030815, end: 20031023
  2. ALPRAZOLAM [Concomitant]
  3. ATENOLOL [Concomitant]
  4. CONJUGATED ESTROGENS [Concomitant]
  5. OXCARBAZEPINE [Concomitant]
  6. SERTRALINE [Concomitant]

REACTIONS (1)
  - LEUKOPENIA [None]
